FAERS Safety Report 24996126 (Version 2)
Quarter: 2025Q2

REPORT INFORMATION
  Report Type: Spontaneous
  Country: US (occurrence: US)
  Receive Date: 20250221
  Receipt Date: 20250521
  Transmission Date: 20250717
  Serious: No
  Sender: CATALYST PHARMA
  Company Number: US-CATALYST PHARMACEUTICALS-US-CATA-25-00133

PATIENT
  Age: 7 Year
  Sex: Male
  Weight: 38.095 kg

DRUGS (20)
  1. AGAMREE [Suspect]
     Active Substance: VAMOROLONE
     Indication: Duchenne muscular dystrophy
     Dosage: 4.9 ML DAILY
     Route: 048
     Dates: start: 20241203
  2. AGAMREE [Suspect]
     Active Substance: VAMOROLONE
     Dosage: 3.5 ML DAILY
     Route: 048
     Dates: start: 202502, end: 202502
  3. AGAMREE [Suspect]
     Active Substance: VAMOROLONE
     Dosage: 2.5 ML DAILY
     Route: 048
     Dates: start: 202502
  4. ALBUTEROL SULFATE [Concomitant]
     Active Substance: ALBUTEROL SULFATE
     Indication: Dyspnoea
     Route: 055
  5. CHILDRENS MOTRIN [Concomitant]
     Active Substance: IBUPROFEN
     Indication: Pain
     Route: 048
  6. CHILDRENS MOTRIN [Concomitant]
     Active Substance: IBUPROFEN
     Indication: Pyrexia
  7. DELSYM COUGH PLUS CHEST CONGESTION DM [Concomitant]
     Active Substance: DEXTROMETHORPHAN HYDROBROMIDE\GUAIFENESIN
     Indication: Cough
     Route: 048
  8. DELSYM COUGH PLUS CHEST CONGESTION DM [Concomitant]
     Active Substance: DEXTROMETHORPHAN HYDROBROMIDE\GUAIFENESIN
     Indication: Nasopharyngitis
  9. EMERGEN-C KIDS IMMUNE PLUS [Concomitant]
     Indication: Immune system disorder
     Dosage: 1 TABLET DAILY
     Route: 048
  10. INVEGA [Concomitant]
     Active Substance: PALIPERIDONE
     Indication: Aggression
     Dosage: 3 MG DAILY
     Route: 048
  11. IPRATROPIUM BROMIDE [Concomitant]
     Active Substance: IPRATROPIUM BROMIDE
     Indication: Dyspnoea
     Route: 055
  12. MELATONIN [Concomitant]
     Active Substance: MELATONIN
     Indication: Sleep disorder
     Route: 048
  13. MUPIROCIN [Concomitant]
     Active Substance: MUPIROCIN
     Indication: Skin infection
     Route: 061
  14. SERTRALINE [Concomitant]
     Active Substance: SERTRALINE HYDROCHLORIDE
     Indication: Anxiety
     Dosage: 125 MG DAILY
     Route: 048
  15. TYLENOL CHILDREN^S COLD AND COUGH [Concomitant]
     Indication: Cough
     Route: 048
  16. TYLENOL CHILDREN^S COLD AND COUGH [Concomitant]
     Indication: Nasopharyngitis
  17. CHILDRENS TYLENOL [Concomitant]
     Active Substance: ACETAMINOPHEN
     Indication: Pain
     Route: 048
  18. CHILDRENS TYLENOL [Concomitant]
     Active Substance: ACETAMINOPHEN
     Indication: Pyrexia
  19. VICKS NYQUIL CHILDREN^S COLD AND COUGH [Concomitant]
     Indication: Cough
     Route: 048
  20. VICKS NYQUIL CHILDREN^S COLD AND COUGH [Concomitant]
     Indication: Nasopharyngitis

REACTIONS (5)
  - Urticaria [Recovering/Resolving]
  - Pollakiuria [Not Recovered/Not Resolved]
  - General physical health deterioration [Not Recovered/Not Resolved]
  - Skin bacterial infection [Not Recovered/Not Resolved]
  - Weight increased [Not Recovered/Not Resolved]

NARRATIVE: CASE EVENT DATE: 20250101
